FAERS Safety Report 7495795-7 (Version None)
Quarter: 2011Q2

REPORT INFORMATION
  Report Type: 
  Country: None (occurrence: None)
  Receive Date: 20110523
  Receipt Date: 20110509
  Transmission Date: 20111010
  Serious: Yes (Other)
  Sender: FDA-Public Use
  Company Number: DE-ELI_LILLY_AND_COMPANY-DE201105002323

PATIENT
  Sex: Male

DRUGS (7)
  1. CYMBALTA [Suspect]
     Dosage: 90 MG, UNK
     Route: 048
     Dates: start: 20110419, end: 20110420
  2. DOXEPIN [Concomitant]
     Dosage: 60 MG, QD
     Dates: start: 20110421, end: 20110425
  3. CYMBALTA [Suspect]
     Indication: DEPRESSION
     Dosage: 30 MG, UNK
     Route: 048
     Dates: start: 20110412, end: 20110414
  4. DOXEPIN [Concomitant]
     Dosage: 160 MG, QD
     Dates: start: 20110408
  5. CYMBALTA [Suspect]
     Dosage: 60 MG, UNK
     Route: 048
     Dates: start: 20110415, end: 20110418
  6. DOXEPIN [Concomitant]
     Dosage: 220 MG, QD
     Dates: start: 20110418
  7. CYMBALTA [Suspect]
     Dosage: 30 MG, UNK
     Dates: start: 20110421, end: 20110425

REACTIONS (4)
  - INTESTINAL OBSTRUCTION [None]
  - HALLUCINATION, AUDITORY [None]
  - HALLUCINATION, VISUAL [None]
  - EPISTAXIS [None]
